FAERS Safety Report 10192201 (Version 1)
Quarter: 2014Q2

REPORT INFORMATION
  Report Type: Report from Study
  Country: US (occurrence: US)
  Receive Date: 20140523
  Receipt Date: 20140523
  Transmission Date: 20141212
  Serious: Yes (Other)
  Sender: FDA-Public Use
  Company Number: US-DYAX CORP.-2014DX000075

PATIENT
  Age: 40 Year
  Sex: Male

DRUGS (1)
  1. KALBITOR [Suspect]
     Indication: HEREDITARY ANGIOEDEMA
     Route: 065

REACTIONS (3)
  - Anaphylactic reaction [Unknown]
  - Hereditary angioedema [Unknown]
  - Off label use [Unknown]
